FAERS Safety Report 9459753 (Version 2)
Quarter: 2013Q4

REPORT INFORMATION
  Report Type: Report from Study
  Country: AR (occurrence: AR)
  Receive Date: 20130815
  Receipt Date: 20131120
  Transmission Date: 20140711
  Serious: Yes (Death, Hospitalization, Other)
  Sender: FDA-Public Use
  Company Number: US-ASTELLAS-2013US008625

PATIENT
  Age: 64 Year
  Sex: Male

DRUGS (3)
  1. ERLOTINIB TABLET [Suspect]
     Indication: LUNG CARCINOMA CELL TYPE UNSPECIFIED STAGE IV
     Dosage: 150 MG, UID/QD
     Route: 048
     Dates: start: 20120917
  2. ERLOTINIB TABLET [Suspect]
     Dosage: 100 MG, UID/QD
     Route: 048
  3. ERLOTINIB TABLET [Suspect]
     Dosage: 50 MG, UID/QD
     Route: 048
     Dates: end: 20130615

REACTIONS (10)
  - Pericardial effusion [Recovered/Resolved]
  - Thrombocytopenia [Not Recovered/Not Resolved]
  - Blindness [Unknown]
  - Ischaemic stroke [Not Recovered/Not Resolved]
  - Onychomadesis [Not Recovered/Not Resolved]
  - Haemorrhagic stroke [Fatal]
  - Sepsis [Not Recovered/Not Resolved]
  - Rash macular [Recovering/Resolving]
  - Dermatitis acneiform [Recovering/Resolving]
  - Diarrhoea [Recovering/Resolving]
